FAERS Safety Report 5749179-X (Version None)
Quarter: 2008Q2

REPORT INFORMATION
  Report Type: 
  Country: None (occurrence: None)
  Receive Date: 20080527
  Receipt Date: 20080515
  Transmission Date: 20081010
  Serious: Yes (Hospitalization)
  Sender: FDA-Public Use
  Company Number: MX-ROCHE-564750

PATIENT
  Sex: Male
  Weight: 140 kg

DRUGS (1)
  1. XENICAL [Suspect]
     Indication: OVERWEIGHT
     Route: 048
     Dates: start: 20080401, end: 20080429

REACTIONS (1)
  - COLITIS [None]
